APPROVED DRUG PRODUCT: PALIPERIDONE
Active Ingredient: PALIPERIDONE
Strength: 3MG
Dosage Form/Route: TABLET, EXTENDED RELEASE;ORAL
Application: A203279 | Product #001 | TE Code: AB
Applicant: APOTEX INC
Approved: Jan 26, 2026 | RLD: No | RS: No | Type: RX